FAERS Safety Report 15785878 (Version 2)
Quarter: 2020Q3

REPORT INFORMATION
  Report Type: Report from Study
  Country: GB (occurrence: GB)
  Receive Date: 20190103
  Receipt Date: 20200709
  Transmission Date: 20201104
  Serious: Yes (Hospitalization)
  Sender: FDA-Public Use
  Company Number: GB-PFIZER INC-20150901220

PATIENT
  Age: 60 Year
  Sex: Female
  Weight: 80.2 kg

DRUGS (5)
  1. DOMPERIDONE [Concomitant]
     Active Substance: DOMPERIDONE
     Indication: NAUSEA
     Dosage: 20 MG, AS NEEDED, 3 TIMES A DAY
     Route: 048
     Dates: start: 20150621, end: 20160210
  2. ZOMETA [Concomitant]
     Active Substance: ZOLEDRONIC ACID
     Indication: BREAST CANCER METASTATIC
     Dosage: 4 MG, CYCLIC, EVERY 4 WEEKS
     Route: 042
     Dates: start: 201410, end: 20151223
  3. TALAZOPARIB. [Suspect]
     Active Substance: TALAZOPARIB
     Indication: BREAST CANCER METASTATIC
     Dosage: 1 MG, 1X/DAY
     Route: 048
     Dates: start: 20150618, end: 20150727
  4. TALAZOPARIB. [Suspect]
     Active Substance: TALAZOPARIB
     Dosage: 0.50 MG, 1X/DAY
     Route: 048
     Dates: start: 20150819
  5. IBUPROFEN. [Concomitant]
     Active Substance: IBUPROFEN
     Indication: PAIN
     Dosage: 200 MG, AS NEEDED, 3 TIMES A DAY
     Route: 048
     Dates: start: 20150521

REACTIONS (1)
  - Neutropenic sepsis [Recovered/Resolved]

NARRATIVE: CASE EVENT DATE: 20150723
